FAERS Safety Report 23357873 (Version 1)
Quarter: 2024Q1

REPORT INFORMATION
  Report Type: Spontaneous
  Country: US (occurrence: US)
  Receive Date: 20240102
  Receipt Date: 20240102
  Transmission Date: 20240410
  Serious: Yes (Other)
  Sender: FDA-Public Use
  Company Number: US-PFIZER INC-PV202300206600

PATIENT
  Age: 68 Year
  Sex: Female
  Weight: 134.1 kg

DRUGS (4)
  1. IBRANCE [Suspect]
     Active Substance: PALBOCICLIB
     Indication: Breast cancer stage IV
     Dosage: 125 MG, CYCLIC (ONCE DAILY FROM DAY 1 THROUGH 21 OF EVERY 28 DAYS)
     Route: 048
  2. IBRANCE [Suspect]
     Active Substance: PALBOCICLIB
     Indication: Breast cancer recurrent
     Dosage: 100 MG, CYCLIC (TAKE 1 CAPSULE ON DAY 1-21 OF 28-DAY CYCLE/DAILY FOR 21 DAYS, THEN OFF FOR 7 DAYS)
     Route: 048
     Dates: start: 20231130
  3. IBRANCE [Suspect]
     Active Substance: PALBOCICLIB
     Indication: Malignant pleural effusion
  4. FASLODEX [Concomitant]
     Active Substance: FULVESTRANT
     Dosage: UNK

REACTIONS (1)
  - Neutropenia [Unknown]
